FAERS Safety Report 10239663 (Version 1)
Quarter: 2014Q2

REPORT INFORMATION
  Report Type: Spontaneous
  Country: PL (occurrence: None)
  Receive Date: 20140612
  Receipt Date: 20140612
  Transmission Date: 20141212
  Serious: Yes (Hospitalization, Other)
  Sender: FDA-Public Use
  Company Number: 1395538

PATIENT
  Age: 58 Year
  Sex: Female

DRUGS (2)
  1. PROPAFENONE (NON-SPECIFIC) [Suspect]
     Indication: PALPITATIONS
  2. METOPROLOL [Concomitant]

REACTIONS (3)
  - Brugada syndrome [None]
  - Syncope [None]
  - Injury [None]
